FAERS Safety Report 13769555 (Version 1)
Quarter: 2017Q3

REPORT INFORMATION
  Report Type: Spontaneous
  Country: US (occurrence: US)
  Receive Date: 20170719
  Receipt Date: 20170719
  Transmission Date: 20171127
  Serious: No
  Sender: FDA-Public Use
  Company Number: US-BAUSCH-BL-2017-001411

PATIENT
  Age: 73 Year
  Sex: Female
  Weight: 61.29 kg

DRUGS (3)
  1. PRIMIDONE. [Concomitant]
     Active Substance: PRIMIDONE
     Indication: TREMOR
     Route: 048
  2. XIFAXAN [Suspect]
     Active Substance: RIFAXIMIN
     Indication: IRRITABLE BOWEL SYNDROME
     Route: 048
     Dates: start: 20170109, end: 20170116
  3. WARFARIN [Concomitant]
     Active Substance: WARFARIN
     Indication: PROTEIN S DEFICIENCY
     Route: 048

REACTIONS (2)
  - Rash [Recovered/Resolved]
  - Mouth ulceration [Recovering/Resolving]

NARRATIVE: CASE EVENT DATE: 20170109
